FAERS Safety Report 5441692-8 (Version None)
Quarter: 2007Q3

REPORT INFORMATION
  Report Type: 
  Country: None (occurrence: None)
  Receive Date: 20070829
  Receipt Date: 20070814
  Transmission Date: 20080115
  Serious: Yes (Hospitalization)
  Sender: FDA-Public Use
  Company Number: 100#3#2007-03067

PATIENT
  Age: 81 Year
  Sex: Male

DRUGS (9)
  1. SERTRALINE [Suspect]
     Indication: DRUG USE FOR UNKNOWN INDICATION
     Dosage: 50MG (1/1 DAYS)
     Dates: start: 19910509
  2. AMILORIDE (AMILORIDE) (AMILORIDE) [Concomitant]
  3. AMITRIPTLINE HCL [Concomitant]
  4. FUROSEMIDE (FUROSEMIDE) (FUROSEMIDE) [Concomitant]
  5. IPRATROPIUM BROMIDE (IPRATROPIUM BROMIDE) (IPRATROPIUM) [Concomitant]
  6. ISOSORBIDE MONONITRATE (ISOSORBIDE MONONITRATE) (ISOSORBIDE MONONITRAT [Concomitant]
  7. LITHIUM CARBONATE [Concomitant]
  8. SALBUTAMOL (SALBUTAMOL) (SALBUTAMOL) [Concomitant]
  9. THIORIDAZINE (THIORIDAZINE) (THIORIDAZINE) [Concomitant]

REACTIONS (8)
  - ASPARTATE AMINOTRANSFERASE INCREASED [None]
  - BLOOD ALKALINE PHOSPHATASE INCREASED [None]
  - GAMMA-GLUTAMYLTRANSFERASE INCREASED [None]
  - HAEMATEMESIS [None]
  - HAEMOGLOBIN DECREASED [None]
  - HEPATIC FUNCTION ABNORMAL [None]
  - LIVER DISORDER [None]
  - WHITE BLOOD CELL COUNT INCREASED [None]
